FAERS Safety Report 10102909 (Version 2)
Quarter: 2014Q2

REPORT INFORMATION
  Report Type: Report from Study
  Country: US (occurrence: US)
  Receive Date: 20140424
  Receipt Date: 20140424
  Transmission Date: 20141212
  Serious: Yes (Other)
  Sender: FDA-Public Use
  Company Number: US-BAYER-2013-054249

PATIENT
  Age: 52 Year
  Sex: Female

DRUGS (4)
  1. BETASERON [Suspect]
     Indication: MULTIPLE SCLEROSIS
     Dosage: 6 MIU, QOD
     Route: 058
     Dates: start: 20130328
  2. BETASERON [Suspect]
     Indication: MULTIPLE SCLEROSIS
     Dosage: 8 MIU, QOD
     Route: 058
  3. RITALIN [Concomitant]
     Indication: ATTENTION DEFICIT/HYPERACTIVITY DISORDER
     Dosage: UNK UNK, QD
  4. TRAZODONE [Concomitant]
     Dosage: 100 MG, EVERY NIGHT

REACTIONS (6)
  - Tooth disorder [Not Recovered/Not Resolved]
  - Loose tooth [Not Recovered/Not Resolved]
  - Dental caries [Not Recovered/Not Resolved]
  - Toothache [Not Recovered/Not Resolved]
  - Injection site pain [Recovered/Resolved]
  - Insomnia [Not Recovered/Not Resolved]
